FAERS Safety Report 11110644 (Version 1)
Quarter: 2015Q2

REPORT INFORMATION
  Report Type: Spontaneous
  Country: FR (occurrence: FR)
  Receive Date: 20150513
  Receipt Date: 20150513
  Transmission Date: 20150821
  Serious: Yes (Other)
  Sender: FDA-Public Use
  Company Number: PHHY2015FR055915

PATIENT
  Age: 24 Month
  Sex: Female

DRUGS (1)
  1. AMOXICILLIN SANDOZ [Suspect]
     Active Substance: AMOXICILLIN
     Indication: CHEILITIS
     Route: 065

REACTIONS (4)
  - Kaposi^s sarcoma [Unknown]
  - Dermatitis bullous [Unknown]
  - Mucosal erosion [Unknown]
  - Feeding disorder [Unknown]
